FAERS Safety Report 14523556 (Version 2)
Quarter: 2019Q1

REPORT INFORMATION
  Report Type: Report from Study
  Country: US (occurrence: US)
  Receive Date: 20180212
  Receipt Date: 20190212
  Transmission Date: 20190417
  Serious: No
  Sender: FDA-Public Use
  Company Number: PHEH2018US005058

PATIENT
  Sex: Female

DRUGS (1)
  1. ZORTRESS [Suspect]
     Active Substance: EVEROLIMUS
     Indication: TRANSPLANT
     Dosage: 0.75 MG, UNK
     Route: 065

REACTIONS (3)
  - Dysphonia [Recovering/Resolving]
  - Influenza [Unknown]
  - Nasopharyngitis [Recovering/Resolving]
